APPROVED DRUG PRODUCT: FUROSEMIDE
Active Ingredient: FUROSEMIDE
Strength: 10MG/ML
Dosage Form/Route: INJECTABLE;INJECTION
Application: A203428 | Product #001 | TE Code: AP
Applicant: AVET LIFESCIENCES LTD
Approved: Aug 26, 2014 | RLD: No | RS: No | Type: RX